FAERS Safety Report 5883821-8 (Version None)
Quarter: 2008Q3

REPORT INFORMATION
  Report Type: 
  Country: None (occurrence: None)
  Receive Date: 20080915
  Receipt Date: 20080909
  Transmission Date: 20090109
  Serious: Yes (Other)
  Sender: FDA-Public Use
  Company Number: A0746589A

PATIENT
  Age: 62 Year
  Sex: Female

DRUGS (7)
  1. TYKERB [Suspect]
     Indication: BREAST CANCER
     Dosage: 1250MG PER DAY
     Route: 048
     Dates: start: 20080525
  2. XELODA [Suspect]
     Indication: BREAST CANCER
     Dosage: 500MG VARIABLE DOSE
     Route: 048
     Dates: start: 20080525
  3. ATIVAN [Concomitant]
  4. AMBIEN [Concomitant]
  5. HYDROCHLOROTHIAZIDE [Concomitant]
  6. SOMA [Concomitant]
  7. ATIVAN [Concomitant]

REACTIONS (10)
  - ASTHENIA [None]
  - CHANGE OF BOWEL HABIT [None]
  - DEHYDRATION [None]
  - DEPRESSED LEVEL OF CONSCIOUSNESS [None]
  - DIARRHOEA [None]
  - FATIGUE [None]
  - FLATULENCE [None]
  - MENTAL IMPAIRMENT [None]
  - MOOD ALTERED [None]
  - MUSCLE SPASMS [None]
